FAERS Safety Report 17596429 (Version 1)
Quarter: 2020Q1

REPORT INFORMATION
  Report Type: Report from Study
  Country: None (occurrence: US)
  Receive Date: 20200330
  Receipt Date: 20200330
  Transmission Date: 20200409
  Serious: Yes (Hospitalization, Other)
  Sender: FDA-Public Use
  Company Number: US-ABBVIE-20P-163-3340522-00

PATIENT
  Sex: Male

DRUGS (1)
  1. IMBRUVICA [Suspect]
     Active Substance: IBRUTINIB
     Indication: CHRONIC LYMPHOCYTIC LEUKAEMIA
     Route: 048
     Dates: start: 20190514

REACTIONS (7)
  - Catheterisation cardiac [Unknown]
  - Pneumonia [Unknown]
  - Spinal operation [Unknown]
  - Blood sodium decreased [Unknown]
  - Gastrooesophageal reflux disease [Unknown]
  - Pericarditis [Unknown]
  - Coronary artery occlusion [Unknown]
